FAERS Safety Report 25632260 (Version 1)
Quarter: 2025Q3

REPORT INFORMATION
  Report Type: Spontaneous
  Country: CA (occurrence: CA)
  Receive Date: 20250801
  Receipt Date: 20250801
  Transmission Date: 20251020
  Serious: Yes (Hospitalization)
  Sender: AMGEN
  Company Number: CA-AMGEN-CANSP2025149935

PATIENT
  Age: 71 Year
  Sex: Female
  Weight: 46 kg

DRUGS (7)
  1. PROLIA [Suspect]
     Active Substance: DENOSUMAB
     Indication: Osteoporosis
     Dosage: 60 MILLIGRAM, Q6MO (1 EVERY 6 MONTHS)
     Route: 058
  2. DULOXETINE [Concomitant]
     Active Substance: DULOXETINE
  3. TRETINOIN [Concomitant]
     Active Substance: TRETINOIN
     Route: 065
  4. SYNTHROID [Concomitant]
     Active Substance: LEVOTHYROXINE SODIUM
  5. VAGIFEM [Concomitant]
     Active Substance: ESTRADIOL
  6. VOLTAREN [Concomitant]
     Active Substance: DICLOFENAC SODIUM
  7. Riva cal d1000 [Concomitant]

REACTIONS (5)
  - Femur fracture [Recovering/Resolving]
  - Muscular weakness [Recovering/Resolving]
  - Arthralgia [Recovering/Resolving]
  - Fall [Recovering/Resolving]
  - Pain in extremity [Recovering/Resolving]
